FAERS Safety Report 7193757-0 (Version None)
Quarter: 2010Q4

REPORT INFORMATION
  Report Type: 
  Country: None (occurrence: None)
  Receive Date: 20101124
  Receipt Date: 20100830
  Transmission Date: 20110411
  Serious: No
  Sender: FDA-Public Use
  Company Number: 017540

PATIENT
  Sex: Female

DRUGS (7)
  1. LACOSAMIDE [Suspect]
     Indication: CONVULSION
     Dosage: (50 MG BID ORAL) ; (100 MG BID ORAL)
     Route: 048
     Dates: start: 20100701, end: 20100811
  2. LACOSAMIDE [Suspect]
     Indication: CONVULSION
     Dosage: (50 MG BID ORAL) ; (100 MG BID ORAL)
     Route: 048
     Dates: start: 20100812, end: 20100820
  3. ZONEGRAN [Concomitant]
  4. PREDNISONE [Concomitant]
  5. COUMADIN [Concomitant]
  6. DIGOXIN [Concomitant]
  7. COZAAR [Concomitant]

REACTIONS (1)
  - HYPERSEXUALITY [None]
